FAERS Safety Report 8175958-8 (Version None)
Quarter: 2012Q1

REPORT INFORMATION
  Report Type: 
  Country: None (occurrence: None)
  Receive Date: 20120301
  Receipt Date: 20120222
  Transmission Date: 20120608
  Serious: No
  Sender: FDA-Public Use
  Company Number: US-PFIZER INC-2012043752

PATIENT
  Sex: Female
  Weight: 52.154 kg

DRUGS (4)
  1. PHOSPHOLINE IODIDE [Suspect]
     Dosage: ONE DROP TWO TIMES A DAY IN EACH EYE
     Route: 047
     Dates: start: 20020101
  2. BENICAR HCT [Concomitant]
     Indication: HYPERTENSION
     Dosage: 40/25 MG, DAILY
     Route: 048
  3. BENICAR [Concomitant]
     Indication: HYPERTENSION
     Dosage: UNK
  4. PHOSPHOLINE IODIDE [Suspect]
     Indication: GLAUCOMA
     Dosage: ONE DROP IN THE MORNING AND ONE DROP AT NIGHT IN EACH EYE
     Route: 047

REACTIONS (6)
  - EYE IRRITATION [None]
  - ERYTHEMA OF EYELID [None]
  - EYELID DISORDER [None]
  - HYPERSENSITIVITY [None]
  - EYE PRURITUS [None]
  - BODY HEIGHT DECREASED [None]
